FAERS Safety Report 17511965 (Version 2)
Quarter: 2020Q2

REPORT INFORMATION
  Report Type: Spontaneous
  Country: US (occurrence: US)
  Receive Date: 20200308
  Receipt Date: 20200528
  Transmission Date: 20200713
  Serious: No
  Sender: FDA-Public Use
  Company Number: US-TEVA-2020-US-1194285

PATIENT
  Sex: Female

DRUGS (2)
  1. CICLOPIROX. [Suspect]
     Active Substance: CICLOPIROX
     Indication: PSORIASIS
     Route: 065
     Dates: start: 2018
  2. CICLOPIROX. [Suspect]
     Active Substance: CICLOPIROX
     Dosage: 1 TABLESPOON
     Route: 065
     Dates: start: 20200403, end: 20200403

REACTIONS (2)
  - Product use in unapproved indication [Unknown]
  - Ocular hyperaemia [Recovered/Resolved]

NARRATIVE: CASE EVENT DATE: 2018
